FAERS Safety Report 12323871 (Version 1)
Quarter: 2016Q2

REPORT INFORMATION
  Report Type: Report from Study
  Country: US (occurrence: US)
  Receive Date: 20160502
  Receipt Date: 20160502
  Transmission Date: 20160815
  Serious: Yes (Hospitalization, Other)
  Sender: FDA-Public Use
  Company Number: US-MDT-ADR-2015-02455

PATIENT
  Age: 43 Year
  Sex: Female

DRUGS (1)
  1. COMPOUNDED BACLOFEN [Suspect]
     Active Substance: BACLOFEN
     Dosage: 449.9 MCG/DAY
     Route: 037

REACTIONS (7)
  - Movement disorder [Unknown]
  - Muscle tightness [Unknown]
  - Muscle spasticity [Unknown]
  - Musculoskeletal stiffness [Unknown]
  - Medical device site ulcer [Unknown]
  - Performance status decreased [Unknown]
  - Muscle rigidity [Unknown]
